FAERS Safety Report 25071167 (Version 1)
Quarter: 2025Q1

REPORT INFORMATION
  Report Type: Report from Study
  Country: IN (occurrence: IN)
  Receive Date: 20250312
  Receipt Date: 20250312
  Transmission Date: 20250408
  Serious: Yes (Other)
  Sender: TAKEDA
  Company Number: IN-TAKEDA-2025TUS024924

PATIENT
  Sex: Male
  Weight: 68 kg

DRUGS (1)
  1. VEDOLIZUMAB [Suspect]
     Active Substance: VEDOLIZUMAB
     Indication: Colitis ulcerative

REACTIONS (5)
  - Haematochezia [Unknown]
  - Mucous stools [Unknown]
  - Faeces soft [Unknown]
  - Defaecation urgency [Unknown]
  - Abdominal pain [Unknown]
